FAERS Safety Report 21309404 (Version 1)
Quarter: 2022Q3

REPORT INFORMATION
  Report Type: Spontaneous
  Country: US (occurrence: US)
  Receive Date: 20220908
  Receipt Date: 20220908
  Transmission Date: 20221027
  Serious: No
  Sender: FDA-Public Use
  Company Number: US-BRAINTREE LABORATORIES, INC.-2022BTE00381

PATIENT
  Age: 59 Year
  Sex: Male

DRUGS (7)
  1. SUPREP BOWEL PREP [Suspect]
     Active Substance: MAGNESIUM SULFATE\POTASSIUM SULFATE\SODIUM SULFATE
     Indication: Colonoscopy
     Dosage: 2 X 6 OZ. BOTTLE, 1X
     Route: 048
     Dates: start: 20220505, end: 20220506
  2. TEGRETOL [Concomitant]
     Active Substance: CARBAMAZEPINE
  3. UNSPECIFIED INGREDIENT [Concomitant]
     Active Substance: UNSPECIFIED INGREDIENT
  4. ASPIRIN [Concomitant]
     Active Substance: ASPIRIN
  5. UNSPECIFIED HIGH BLOOD PRESSURE PILL [Concomitant]
  6. UNSPECIFIED INGREDIENT [Concomitant]
     Active Substance: UNSPECIFIED INGREDIENT
  7. UNSPECIFED CONTROLLED SUBSTANCES [Concomitant]

REACTIONS (4)
  - Abdominal rigidity [Recovered/Resolved]
  - Headache [Recovered/Resolved]
  - Dizziness [Recovered/Resolved]
  - Nausea [Recovered/Resolved]

NARRATIVE: CASE EVENT DATE: 20220505
